FAERS Safety Report 5133659-4 (Version None)
Quarter: 2006Q4

REPORT INFORMATION
  Report Type: 
  Country: None (occurrence: None)
  Receive Date: 20061018
  Receipt Date: 20061009
  Transmission Date: 20070319
  Serious: Yes (Life-Threatening, Hospitalization)
  Sender: FDA-Public Use
  Company Number: 2006123834

PATIENT
  Age: 66 Year
  Sex: Male
  Weight: 64 kg

DRUGS (1)
  1. GENOTROPIN [Suspect]
     Indication: HYPOPITUITARISM
     Dosage: 0.2 MG (0.2 MG, 1 IN 1 D), SUBCUTANEOUS
     Route: 058
     Dates: start: 20000815

REACTIONS (2)
  - ALCOHOL USE [None]
  - GRAND MAL CONVULSION [None]
